FAERS Safety Report 4542959-8 (Version None)
Quarter: 2004Q4

REPORT INFORMATION
  Report Type: 
  Country: None (occurrence: None)
  Receive Date: 20041229
  Receipt Date: 20041213
  Transmission Date: 20050328
  Serious: Yes (Other)
  Sender: FDA-Public Use
  Company Number: A0537026A

PATIENT
  Age: 65 Year
  Sex: Female
  Weight: 54.3863 kg

DRUGS (6)
  1. COMMIT [Suspect]
     Indication: EX-SMOKER
     Dosage: 2 MG TRANSBUCCAL
     Dates: start: 20041002
  2. LISINOPRIL [Concomitant]
  3. THYROXINE SODIUM [Concomitant]
  4. HYDROXYCHLOROQUINE SO4 [Concomitant]
  5. PHENYTOIN [Concomitant]
  6. PHENOBARBITONE [Concomitant]

REACTIONS (3)
  - CONVULSION [None]
  - MEMORY IMPAIRMENT [None]
  - SOMNOLENCE [None]
